FAERS Safety Report 5832072-1 (Version None)
Quarter: 2008Q3

REPORT INFORMATION
  Report Type: 
  Country: None (occurrence: None)
  Receive Date: 20080804
  Receipt Date: 20080728
  Transmission Date: 20090109
  Serious: Yes (Other)
  Sender: FDA-Public Use
  Company Number: US-ROCHE-574556

PATIENT
  Age: 64 Year
  Sex: Female

DRUGS (1)
  1. KLONOPIN [Suspect]
     Dosage: SECOND INDICATION: DEPRESSION
     Route: 065

REACTIONS (3)
  - BLINDNESS UNILATERAL [None]
  - CEREBROVASCULAR ACCIDENT [None]
  - HERPES ZOSTER [None]
